FAERS Safety Report 4989397-1 (Version None)
Quarter: 2006Q2

REPORT INFORMATION
  Report Type: 
  Country: None (occurrence: None)
  Receive Date: 20060426
  Receipt Date: 20060406
  Transmission Date: 20061013
  Serious: Yes (Hospitalization, Other)
  Sender: FDA-Public Use
  Company Number: US200604001263

PATIENT
  Sex: Female

DRUGS (4)
  1. FORTEO [Suspect]
     Indication: OSTEOPOROSIS
     Dosage: 20 UG,
     Dates: start: 20051201
  2. FORTEO [Concomitant]
  3. HUMIRA [Concomitant]
  4. ANTIBIOTICS [Concomitant]

REACTIONS (5)
  - CEREBROVASCULAR ACCIDENT [None]
  - CYSTITIS [None]
  - DEPRESSED LEVEL OF CONSCIOUSNESS [None]
  - MENINGITIS [None]
  - PHARMACEUTICAL PRODUCT COMPLAINT [None]
